FAERS Safety Report 18711515 (Version 2)
Quarter: 2021Q1

REPORT INFORMATION
  Report Type: Other
  Country: CN (occurrence: CN)
  Receive Date: 20210107
  Receipt Date: 20210115
  Transmission Date: 20210419
  Serious: Yes (Hospitalization)
  Sender: FDA-Public Use
  Company Number: CN-APOTEX-2021AP001020

PATIENT

DRUGS (5)
  1. SEROXAT [Suspect]
     Active Substance: PAROXETINE HYDROCHLORIDE
     Indication: DEPRESSION
     Dosage: 1.5 G, QD
     Route: 048
     Dates: start: 20190801, end: 20200111
  2. OXCARBAZEPINE. [Suspect]
     Active Substance: OXCARBAZEPINE
     Indication: DEPRESSION
     Dosage: 0.30 G, BID
     Route: 048
     Dates: start: 20190801, end: 20200111
  3. ARIPIPRAZOLE. [Suspect]
     Active Substance: ARIPIPRAZOLE
     Indication: DEPRESSION
     Dosage: 20 MG, QD
     Route: 048
     Dates: start: 20190801, end: 20200111
  4. OXAZEPAM. [Suspect]
     Active Substance: OXAZEPAM
     Indication: DEPRESSION
     Dosage: 15 MG, TID
     Route: 048
     Dates: start: 20190801, end: 20200111
  5. DEPAKINE [VALPROATE SODIUM] [Suspect]
     Active Substance: VALPROATE SODIUM
     Indication: DEPRESSION
     Dosage: 600 MG, TID
     Route: 048
     Dates: start: 20190801, end: 20200111

REACTIONS (1)
  - Hepatic function abnormal [Recovering/Resolving]

NARRATIVE: CASE EVENT DATE: 20200111
